FAERS Safety Report 6823633-1 (Version None)
Quarter: 2010Q3

REPORT INFORMATION
  Report Type: 
  Country: None (occurrence: None)
  Receive Date: 20100708
  Receipt Date: 20060810
  Transmission Date: 20110219
  Serious: No
  Sender: FDA-Public Use
  Company Number: US-PFIZER INC-2006098851

PATIENT
  Sex: Female
  Weight: 48.08 kg

DRUGS (10)
  1. CHANTIX [Suspect]
     Indication: SMOKING CESSATION THERAPY
     Route: 065
     Dates: start: 20060731, end: 20060805
  2. ALIMTA [Concomitant]
     Route: 065
  3. ALL OTHER THERAPEUTIC PRODUCTS [Concomitant]
     Indication: CHEMOTHERAPY
     Route: 065
  4. NEXIUM [Concomitant]
     Indication: GASTRIC DISORDER
     Route: 065
  5. MEDROL [Concomitant]
     Route: 065
  6. FOLIC ACID [Concomitant]
     Route: 065
  7. OXYCODONE HCL [Concomitant]
     Indication: PAIN
     Route: 065
  8. STOOL SOFTENER [Concomitant]
     Route: 065
  9. SPIRIVA [Concomitant]
     Route: 065
  10. ADVAIR DISKUS 100/50 [Concomitant]
     Route: 065

REACTIONS (1)
  - NAUSEA [None]
